FAERS Safety Report 25635469 (Version 1)
Quarter: 2025Q3

REPORT INFORMATION
  Report Type: Spontaneous
  Country: US (occurrence: US)
  Receive Date: 20250802
  Receipt Date: 20250802
  Transmission Date: 20251021
  Serious: Yes (Other)
  Sender: AMGEN
  Company Number: US-AMGEN-USASP2025147277

PATIENT
  Age: 50 Year
  Sex: Female

DRUGS (4)
  1. XGEVA [Suspect]
     Active Substance: DENOSUMAB
     Indication: Invasive ductal breast carcinoma
     Route: 065
  2. ANASTROZOLE [Concomitant]
     Active Substance: ANASTROZOLE
     Indication: Invasive ductal breast carcinoma
  3. RIBOCICLIB [Concomitant]
     Active Substance: RIBOCICLIB
     Indication: Invasive ductal breast carcinoma
  4. AMLODIPINE [Concomitant]
     Active Substance: AMLODIPINE BESYLATE
     Indication: Hypertension
     Dosage: 5 MILLIGRAM, QD

REACTIONS (5)
  - Metastases to liver [Unknown]
  - Invasive ductal breast carcinoma [Unknown]
  - Osteosclerosis [Unknown]
  - Hypophagia [Unknown]
  - Diarrhoea [Unknown]
